FAERS Safety Report 20880773 (Version 1)
Quarter: 2022Q2

REPORT INFORMATION
  Report Type: Spontaneous
  Country: US (occurrence: US)
  Receive Date: 20220526
  Receipt Date: 20220526
  Transmission Date: 20220720
  Serious: No
  Sender: FDA-Public Use
  Company Number: US-RADIUS HEALTH INC.-2021US004497

PATIENT
  Sex: Female

DRUGS (1)
  1. TYMLOS [Suspect]
     Active Substance: ABALOPARATIDE
     Indication: Product used for unknown indication
     Dosage: 80 MCG, DAILY
     Route: 058
     Dates: start: 202108, end: 20211009

REACTIONS (6)
  - Migraine [Unknown]
  - Eye pain [Unknown]
  - Pain in jaw [Unknown]
  - Asthenia [Unknown]
  - Headache [Unknown]
  - Arthralgia [Unknown]
